FAERS Safety Report 10063579 (Version 1)
Quarter: 2014Q2

REPORT INFORMATION
  Report Type: Report from Study
  Country: JP (occurrence: JP)
  Receive Date: 20140407
  Receipt Date: 20140407
  Transmission Date: 20141212
  Serious: Yes (Hospitalization)
  Sender: FDA-Public Use
  Company Number: JP-GILEAD-2014-0098607

PATIENT
  Age: 36 Year
  Sex: Male

DRUGS (8)
  1. EMTRICITABINE/TENOFOVIR DISOPROXIL FUMARATE [Suspect]
     Indication: HIV INFECTION
     Dosage: 1 DF, QD
     Route: 048
     Dates: start: 20120901
  2. ISENTRESS [Suspect]
     Indication: HIV INFECTION
     Dosage: 800 MG, QD
     Route: 048
     Dates: start: 20120901
  3. PREDNISOLONE [Concomitant]
     Indication: HERPES ZOSTER OTICUS
     Route: 048
     Dates: start: 20121114, end: 20121116
  4. PREDNISOLONE [Concomitant]
     Dosage: 20 MG, QD
     Route: 048
     Dates: start: 20121117, end: 20121118
  5. PREDNISOLONE [Concomitant]
     Dosage: 10 MG, QD
     Route: 048
     Dates: start: 20121119, end: 20121120
  6. PROTECADIN [Concomitant]
     Indication: PROPHYLAXIS AGAINST GASTROINTESTINAL ULCER
     Route: 048
     Dates: start: 20121114, end: 20121119
  7. ADETPHOS [Concomitant]
     Indication: DIZZINESS
     Route: 048
     Dates: start: 20121114, end: 20121119
  8. METHYCOBAL [Concomitant]
     Indication: DIZZINESS
     Route: 048
     Dates: start: 20121114, end: 20121119

REACTIONS (1)
  - Herpes zoster [Recovered/Resolved]
